FAERS Safety Report 7712700-6 (Version None)
Quarter: 2011Q3

REPORT INFORMATION
  Report Type: 
  Country: None (occurrence: None)
  Receive Date: 20110826
  Receipt Date: 20110822
  Transmission Date: 20111222
  Serious: Yes (Hospitalization)
  Sender: FDA-Public Use
  Company Number: FR-BRISTOL-MYERS SQUIBB COMPANY-15998693

PATIENT
  Age: 42 Year
  Sex: Female

DRUGS (5)
  1. TAXOL [Suspect]
     Dosage: 156 MG ON D1, D8, D15
     Route: 042
     Dates: start: 20110606, end: 20110802
  2. POLARAMINE [Concomitant]
  3. SOLU-MEDROL [Concomitant]
  4. ZOFRAN [Concomitant]
  5. RANITIDINE [Concomitant]

REACTIONS (7)
  - PRURITUS [None]
  - RASH ERYTHEMATOUS [None]
  - XEROSIS [None]
  - CHEST PAIN [None]
  - ARTHRALGIA [None]
  - MYALGIA [None]
  - PRODUCTIVE COUGH [None]
